FAERS Safety Report 12881039 (Version 1)
Quarter: 2016Q4

REPORT INFORMATION
  Report Type: Spontaneous
  Country: US (occurrence: US)
  Receive Date: 20161025
  Receipt Date: 20161025
  Transmission Date: 20170207
  Serious: No
  Sender: FDA-Public Use
  Company Number: None

PATIENT
  Age: 10 Year
  Sex: Male
  Weight: 35.1 kg

DRUGS (2)
  1. GUANFACINE. [Concomitant]
     Active Substance: GUANFACINE
  2. CONCERTA [Suspect]
     Active Substance: METHYLPHENIDATE HYDROCHLORIDE
     Indication: ATTENTION DEFICIT/HYPERACTIVITY DISORDER
     Dosage: ?          QUANTITY:1 TABLET(S);?
     Route: 048
     Dates: start: 20120501, end: 20161020

REACTIONS (2)
  - Head titubation [None]
  - Tremor [None]

NARRATIVE: CASE EVENT DATE: 20161001
